FAERS Safety Report 8085261-2 (Version None)
Quarter: 2012Q1

REPORT INFORMATION
  Report Type: 
  Country: None (occurrence: None)
  Receive Date: 20120128
  Receipt Date: 20110318
  Transmission Date: 20120608
  Serious: No
  Sender: FDA-Public Use
  Company Number: US-ABBOTT-11P-163-0713386-00

PATIENT
  Sex: Female
  Weight: 78.542 kg

DRUGS (6)
  1. HUMIRA [Suspect]
     Indication: RHEUMATOID ARTHRITIS
     Dates: start: 20080101, end: 20080101
  2. FOLIC ACID [Concomitant]
     Indication: PRODUCT USED FOR UNKNOWN INDICATION
  3. PLAQUENIL [Concomitant]
     Indication: PRODUCT USED FOR UNKNOWN INDICATION
  4. METHOTREXATE [Concomitant]
     Indication: RHEUMATOID ARTHRITIS
  5. HUMIRA [Suspect]
     Indication: COLITIS ULCERATIVE
     Dates: start: 20080101
  6. LEUKOVORIN [Concomitant]
     Indication: PRODUCT USED FOR UNKNOWN INDICATION

REACTIONS (9)
  - CONJUNCTIVITIS INFECTIVE [None]
  - IRITIS [None]
  - EYE PAIN [None]
  - OCULAR HYPERAEMIA [None]
  - DEVICE MALFUNCTION [None]
  - VISUAL IMPAIRMENT [None]
  - VISION BLURRED [None]
  - INCORRECT DOSE ADMINISTERED [None]
  - IMPAIRED DRIVING ABILITY [None]
